FAERS Safety Report 26073627 (Version 1)
Quarter: 2025Q4

REPORT INFORMATION
  Report Type: Spontaneous
  Country: EU (occurrence: EU)
  Receive Date: 20251121
  Receipt Date: 20251121
  Transmission Date: 20260118
  Serious: Yes (Other)
  Sender: TEVA
  Company Number: EU-TEVA-VS-3381639

PATIENT
  Age: 38 Year
  Sex: Male

DRUGS (1)
  1. CLOZAPINE [Suspect]
     Active Substance: CLOZAPINE
     Indication: Schizophrenia
     Route: 048
     Dates: start: 2003

REACTIONS (5)
  - Thrombocytopenia [Not Recovered/Not Resolved]
  - Sinus tachycardia [Unknown]
  - Endocarditis [Unknown]
  - Electrocardiogram QT prolonged [Unknown]
  - Hepatosplenomegaly [Unknown]

NARRATIVE: CASE EVENT DATE: 20050101
